FAERS Safety Report 6261771-5 (Version None)
Quarter: 2009Q3

REPORT INFORMATION
  Report Type: 
  Country: None (occurrence: None)
  Receive Date: 20090702
  Receipt Date: 20090324
  Transmission Date: 20100115
  Serious: No
  Sender: FDA-Public Use
  Company Number: 1000005249

PATIENT
  Age: 59 Year
  Sex: Female

DRUGS (4)
  1. BYSTOLIC [Suspect]
     Indication: HYPERTENSION
     Dosage: 5 MG (5  MG,1 IN 1 D),ORAL
     Route: 048
     Dates: start: 20090316, end: 20090316
  2. BYSTOLIC [Suspect]
     Indication: HYPERTENSION
     Dosage: 2.5 MG (2.5  MG,1 IN 1 D), ORAL
     Route: 048
     Dates: start: 20090317, end: 20090323
  3. PROTONIX (40 MILLIGRAM) [Concomitant]
  4. ATIVAN [Concomitant]

REACTIONS (4)
  - ABDOMINAL DISCOMFORT [None]
  - HEADACHE [None]
  - STOMATITIS [None]
  - THROAT IRRITATION [None]
